FAERS Safety Report 23797124 (Version 2)
Quarter: 2024Q2

REPORT INFORMATION
  Report Type: Spontaneous
  Country: JO (occurrence: None)
  Receive Date: 20240430
  Receipt Date: 20240503
  Transmission Date: 20240715
  Serious: Yes (Hospitalization)
  Sender: FDA-Public Use
  Company Number: JO-ROCHE-3550665

PATIENT
  Age: 30 Year
  Sex: Female

DRUGS (1)
  1. OCREVUS [Suspect]
     Active Substance: OCRELIZUMAB
     Indication: Multiple sclerosis
     Route: 065

REACTIONS (1)
  - Sepsis [Unknown]
